FAERS Safety Report 10050060 (Version 1)
Quarter: 2014Q2

REPORT INFORMATION
  Report Type: Report from Study
  Country: CA (occurrence: CA)
  Receive Date: 20140401
  Receipt Date: 20140401
  Transmission Date: 20141212
  Serious: Yes (Other)
  Sender: FDA-Public Use
  Company Number: CA-JNJFOC-20140316702

PATIENT
  Age: 56 Year
  Sex: Female
  Weight: 57.8 kg

DRUGS (2)
  1. REMICADE [Suspect]
     Indication: CROHN^S DISEASE
     Route: 042
     Dates: start: 20121116
  2. VITAMIN B12 [Concomitant]
     Route: 065

REACTIONS (1)
  - Iritis [Not Recovered/Not Resolved]
